FAERS Safety Report 25355308 (Version 1)
Quarter: 2025Q2

REPORT INFORMATION
  Report Type: Spontaneous
  Country: US (occurrence: US)
  Receive Date: 20250524
  Receipt Date: 20250524
  Transmission Date: 20250716
  Serious: No
  Sender: ABBVIE
  Company Number: US-ABBVIE-6291443

PATIENT
  Age: 29 Year
  Sex: Female

DRUGS (2)
  1. LILETTA [Suspect]
     Active Substance: LEVONORGESTREL
     Indication: Intrauterine contraception
     Route: 015
  2. TRAMADOL [Concomitant]
     Active Substance: TRAMADOL
     Indication: Pelvic pain
     Route: 048
     Dates: start: 20250225

REACTIONS (1)
  - Medical device discomfort [Unknown]
